FAERS Safety Report 10469640 (Version 2)
Quarter: 2014Q4

REPORT INFORMATION
  Report Type: Report from Study
  Country: FR (occurrence: FR)
  Receive Date: 20140923
  Receipt Date: 20141104
  Transmission Date: 20150528
  Serious: Yes (Hospitalization)
  Sender: FDA-Public Use
  Company Number: FR-BAYER-2014-138474

PATIENT
  Age: 75 Year
  Sex: Female
  Weight: 62 kg

DRUGS (15)
  1. RIOCIGUAT (GUANYLATE CYCLASE STIMULATOR) [Suspect]
     Active Substance: RIOCIGUAT
     Indication: PULMONARY HYPERTENSION
     Dosage: VISIT 4 -WK 6; 2.5
     Dates: start: 20140219, end: 20140303
  2. RIOCIGUAT (GUANYLATE CYCLASE STIMULATOR) [Suspect]
     Active Substance: RIOCIGUAT
     Indication: PULMONARY HYPERTENSION
     Dosage: VISIT 6 - WK 12; 2.5
     Dates: start: 20140331, end: 20140624
  3. RIOCIGUAT (GUANYLATE CYCLASE STIMULATOR) [Suspect]
     Active Substance: RIOCIGUAT
     Indication: PULMONARY HYPERTENSION
     Dosage: VISIT 1- WK 0; 1.0
     Dates: start: 20140107, end: 20140120
  4. PREVISCAN [Concomitant]
     Active Substance: FLUINDIONE
     Indication: PULMONARY EMBOLISM
     Dosage: DOSE ACCORDING WITH INR
     Route: 048
     Dates: start: 201307
  5. SPASFON [Concomitant]
     Active Substance: PHLOROGLUCINOL
     Indication: ABDOMINAL PAIN
     Dosage: UNK UNK, PRN
     Route: 048
     Dates: start: 2006
  6. PANTOPRAZOLE [Concomitant]
     Active Substance: PANTOPRAZOLE SODIUM
     Indication: ABDOMINAL PAIN
     Dosage: 40 MG, QD
     Route: 048
     Dates: start: 2006
  7. RIOCIGUAT (GUANYLATE CYCLASE STIMULATOR) [Suspect]
     Active Substance: RIOCIGUAT
     Indication: PULMONARY HYPERTENSION
     Dosage: VISIT 7-WK 24; 2.5
     Dates: start: 20140625, end: 20140915
  8. RIOCIGUAT (GUANYLATE CYCLASE STIMULATOR) [Suspect]
     Active Substance: RIOCIGUAT
     Indication: PULMONARY HYPERTENSION
     Dosage: VISIT 3 - WK 4 ; 2.0
     Dates: start: 20140204, end: 20140218
  9. RIOCIGUAT (GUANYLATE CYCLASE STIMULATOR) [Suspect]
     Active Substance: RIOCIGUAT
     Indication: PULMONARY HYPERTENSION
     Dosage: VISIT 05-WK8; 2.5
     Dates: start: 20140304, end: 20140330
  10. ESCITALOPRAM [Concomitant]
     Active Substance: ESCITALOPRAM OXALATE
     Indication: DEPRESSION
     Dosage: 10 MG, QD
     Route: 048
  11. OXYGEN. [Concomitant]
     Active Substance: OXYGEN
     Indication: PULMONARY HYPERTENSION
     Dosage: 2 L/MIN DURING THE NIGHT
     Route: 045
     Dates: start: 201308, end: 20140331
  12. RIOCIGUAT (GUANYLATE CYCLASE STIMULATOR) [Suspect]
     Active Substance: RIOCIGUAT
     Indication: PULMONARY HYPERTENSION
     Dosage: VISIT 2 - WK 2; 1.5
     Dates: start: 20140121, end: 20140203
  13. RIOCIGUAT (GUANYLATE CYCLASE STIMULATOR) [Suspect]
     Active Substance: RIOCIGUAT
     Indication: PULMONARY HYPERTENSION
     Dosage: VISIT 8 - WK 36; 2.5 MAINTAINED
     Dates: start: 20140915
  14. CELIPROLOL [Concomitant]
     Active Substance: CELIPROLOL
     Indication: HYPERTENSION
     Dosage: 200 MG, UNK
     Route: 048
  15. SERESTA [Concomitant]
     Active Substance: OXAZEPAM
     Indication: DEPRESSION
     Dosage: 50 MG, QD
     Route: 048

REACTIONS (1)
  - Dizziness [None]

NARRATIVE: CASE EVENT DATE: 20140905
